FAERS Safety Report 8887700 (Version 2)
Quarter: 2012Q4

REPORT INFORMATION
  Report Type: Spontaneous
  Country: GB (occurrence: None)
  Receive Date: 20121031
  Receipt Date: 20121108
  Transmission Date: 20130627
  Serious: Yes (Other)
  Sender: FDA-Public Use
  Company Number: 1454547

PATIENT
  Age: 78 Year
  Sex: Female

DRUGS (1)
  1. IRINOTECAN HYDROCHLORIDE [Suspect]
     Indication: DRUG USE FOR UNKNOWN INDICATION
     Dosage: 250 Mg milligram (s), 2 week, intravenous drip
     Dates: start: 20120808

REACTIONS (3)
  - Cerebrovascular accident [None]
  - Dizziness [None]
  - Aphasia [None]
